FAERS Safety Report 24549859 (Version 2)
Quarter: 2025Q3

REPORT INFORMATION
  Report Type: Report from Study
  Country: US (occurrence: US)
  Receive Date: 20241025
  Receipt Date: 20250715
  Transmission Date: 20251020
  Serious: Yes (Hospitalization, Other)
  Sender: PHARMING GROUP
  Company Number: US-PHARMING-PHAUS2024000953

PATIENT

DRUGS (24)
  1. LENIOLISIB PHOSPHATE [Suspect]
     Active Substance: LENIOLISIB PHOSPHATE
     Indication: Activated PI3 kinase delta syndrome
     Dosage: 10 MILLIGRAM, BID
     Route: 048
     Dates: start: 20240725
  2. LENIOLISIB PHOSPHATE [Suspect]
     Active Substance: LENIOLISIB PHOSPHATE
     Dosage: 30 MILLIGRAM, BID
     Route: 048
     Dates: start: 20240808
  3. LENIOLISIB PHOSPHATE [Suspect]
     Active Substance: LENIOLISIB PHOSPHATE
     Dosage: 60 MILLIGRAM, BID
     Route: 048
     Dates: start: 20240909
  4. LENIOLISIB PHOSPHATE [Suspect]
     Active Substance: LENIOLISIB PHOSPHATE
     Dosage: 30 MILLIGRAM, BID
     Route: 048
     Dates: start: 20240923, end: 20240926
  5. LENIOLISIB PHOSPHATE [Suspect]
     Active Substance: LENIOLISIB PHOSPHATE
     Dates: start: 202505
  6. AZITHROMYCIN [Concomitant]
     Active Substance: AZITHROMYCIN
     Indication: Product used for unknown indication
     Dosage: 250 MILLIGRAM, QD
     Route: 048
     Dates: start: 20191111
  7. CARVEDILOL [Concomitant]
     Active Substance: CARVEDILOL
     Indication: Product used for unknown indication
     Dosage: 6.25 MILLIGRAM, BID
     Route: 048
     Dates: start: 202401
  8. CLINDAMYCIN [Concomitant]
     Active Substance: CLINDAMYCIN
     Indication: Product used for unknown indication
     Dosage: 3000 MILLIGRAM, QD
     Route: 048
     Dates: start: 201401
  9. DROSPIRENONE [Concomitant]
     Active Substance: DROSPIRENONE
     Indication: Product used for unknown indication
     Dosage: 1 DOSAGE FORM, QD
     Route: 048
     Dates: start: 20240714
  10. FOLIC ACID [Concomitant]
     Active Substance: FOLIC ACID
     Indication: Product used for unknown indication
     Dosage: 1 MILLIGRAM, QD
     Route: 048
     Dates: start: 20240724
  11. GARLIC                             /01570501/ [Concomitant]
     Indication: Product used for unknown indication
     Dosage: 1 GRAM, BID
     Route: 048
     Dates: start: 20201020
  12. HIZENTRA [Concomitant]
     Active Substance: HUMAN IMMUNOGLOBULIN G
     Indication: Product used for unknown indication
     Dosage: 20 GRAM, ONCE WEEKLY
     Route: 058
     Dates: start: 20180101
  13. MULTIVITAMIN                       /00097801/ [Concomitant]
     Indication: Product used for unknown indication
     Dosage: 1 DOSAGE FORM, QD
     Route: 048
     Dates: start: 201401
  14. OMEPRAZOLE [Concomitant]
     Active Substance: OMEPRAZOLE
     Indication: Product used for unknown indication
     Dosage: 40 MILLIGRAM, QD
     Route: 048
     Dates: start: 201401
  15. PRIMAQUINE [Concomitant]
     Active Substance: PRIMAQUINE
     Indication: Product used for unknown indication
     Dosage: 26.3 MILLIGRAM, QD
     Route: 048
     Dates: start: 20240909
  16. ROSUVASTATIN [Concomitant]
     Active Substance: ROSUVASTATIN
     Indication: Product used for unknown indication
     Dosage: 5 MILLIGRAM, QD
     Route: 048
     Dates: start: 202401
  17. SERTRALINE [Concomitant]
     Active Substance: SERTRALINE HYDROCHLORIDE
     Indication: Product used for unknown indication
     Dosage: 100 MILLIGRAM, QD
     Route: 048
     Dates: start: 202101
  18. SIROLIMUS [Concomitant]
     Active Substance: SIROLIMUS
     Indication: Product used for unknown indication
     Dosage: 0.5 MILLIGRAM, QD
     Route: 048
     Dates: start: 202101
  19. TENOFOVIR ALAFENAMIDE [Concomitant]
     Active Substance: TENOFOVIR ALAFENAMIDE
     Indication: Product used for unknown indication
     Dosage: 25 MILLIGRAM, QD
     Route: 048
     Dates: start: 20140101
  20. TIOTROPIUM BROMIDE [Concomitant]
     Active Substance: TIOTROPIUM BROMIDE
     Indication: Product used for unknown indication
     Dosage: 1.25 MICROGRAM, QD
     Route: 048
     Dates: start: 202401
  21. TREPROSTINIL [Concomitant]
     Active Substance: TREPROSTINIL
     Indication: Product used for unknown indication
     Dosage: 48 MICROGRAM, QID
     Route: 048
     Dates: start: 20240301
  22. SULFAMETHOXAZOLE\TRIMETHOPRIM [Concomitant]
     Active Substance: SULFAMETHOXAZOLE\TRIMETHOPRIM
     Indication: Product used for unknown indication
     Route: 048
     Dates: start: 20240806, end: 20240829
  23. VALGANCICLOVIR [Concomitant]
     Active Substance: VALGANCICLOVIR
     Indication: Product used for unknown indication
     Dosage: 900 MILLIGRAM, BID
     Route: 048
     Dates: start: 202212
  24. WELLBUTRIN [Concomitant]
     Active Substance: BUPROPION HYDROCHLORIDE
     Indication: Product used for unknown indication
     Dosage: 300 MILLIGRAM, QD
     Route: 048
     Dates: start: 20201020

REACTIONS (4)
  - Clostridium difficile colitis [Recovered/Resolved]
  - Cytomegalovirus colitis [Recovered/Resolved]
  - Rash [Recovered/Resolved]
  - Arthralgia [Recovered/Resolved]

NARRATIVE: CASE EVENT DATE: 20240917
